FAERS Safety Report 15109697 (Version 1)
Quarter: 2018Q2

REPORT INFORMATION
  Report Type: Spontaneous
  Country: US (occurrence: US)
  Receive Date: 20180612
  Receipt Date: 20180612
  Transmission Date: 20180711
  Serious: Yes (Hospitalization)
  Sender: FDA-Public Use
  Company Number: None

PATIENT
  Age: 56 Year
  Sex: Female
  Weight: 99.79 kg

DRUGS (1)
  1. GADOLINIUM [Suspect]
     Active Substance: GADOLINIUM

REACTIONS (6)
  - Tinnitus [None]
  - Confusional state [None]
  - Feeling abnormal [None]
  - Dizziness [None]
  - Pain of skin [None]
  - Dysgeusia [None]

NARRATIVE: CASE EVENT DATE: 20170203
